FAERS Safety Report 16309165 (Version 2)
Quarter: 2019Q2

REPORT INFORMATION
  Report Type: Spontaneous
  Country: US (occurrence: US)
  Receive Date: 20190514
  Receipt Date: 20190617
  Transmission Date: 20190711
  Serious: Yes (Hospitalization, Other)
  Sender: FDA-Public Use
  Company Number: US-PFIZER INC-2019202605

PATIENT
  Age: 54 Year
  Sex: Female
  Weight: 73.6 kg

DRUGS (8)
  1. LASIX [Concomitant]
     Active Substance: FUROSEMIDE
     Indication: DIURETIC THERAPY
     Dosage: 40 MG, 2X/DAY (TAKE 1 TABLET BY MOUTH 2 TIMES DAILY)
     Route: 048
     Dates: start: 20190412, end: 20190510
  2. PROTONIX [Concomitant]
     Active Substance: PANTOPRAZOLE SODIUM
     Dosage: 40 MG, 2X/DAY (TAKE 1 TABLET BY MOUTH 2 TIMES DAILY (BEFORE MEALS) FOR 30 DAYS)
     Route: 048
     Dates: start: 20190502, end: 20190521
  3. IBRANCE [Suspect]
     Active Substance: PALBOCICLIB
     Dosage: 75 MG, DAILY (TAKE 1 CAPSULE BY MOUTH DAILY. PER CHEMOTHERAPY SCHEDULE)
     Route: 048
     Dates: start: 20190510
  4. ZOFRAN [Concomitant]
     Active Substance: ONDANSETRON HYDROCHLORIDE
     Indication: NAUSEA
     Dosage: 4 MG, AS NEEDED (TAKE 1 TABLET BY MOUTH EVERY 8 HOURS AS NEEDED)
     Route: 048
     Dates: start: 20190423
  5. K-DUR [Concomitant]
     Active Substance: POTASSIUM CHLORIDE
     Indication: BLOOD POTASSIUM
     Dosage: 20 MEQ, 2X/DAY (TAKE 1 TABLET BY MOUTH 2 TIMES DAILY)
     Route: 048
     Dates: start: 20190418
  6. ALDACTONE [Concomitant]
     Active Substance: SPIRONOLACTONE
     Dosage: 50 MG, DAILY
     Route: 048
  7. ULTRAM [Concomitant]
     Active Substance: TRAMADOL HYDROCHLORIDE
     Indication: PAIN
     Dosage: 200 MG, AS NEEDED (TAKE 1 TABLET BY MOUTH EVERY 6 HOURS AS NEEDED)
     Route: 048
     Dates: start: 20190423
  8. IBRANCE [Suspect]
     Active Substance: PALBOCICLIB
     Indication: BREAST CANCER METASTATIC
     Dosage: 125 MG, CYCLIC (125MG DAILY X 21 D, THEN 7 DAYS OFF)
     Route: 048
     Dates: start: 20190326

REACTIONS (22)
  - Duodenal ulcer [Unknown]
  - Syncope [Unknown]
  - Pneumonia [Unknown]
  - Blood pressure increased [Unknown]
  - Platelet count decreased [Recovered/Resolved]
  - Ascites [Unknown]
  - Hypokalaemia [Unknown]
  - Oedema peripheral [Unknown]
  - Loss of consciousness [Unknown]
  - Respiratory failure [Unknown]
  - Pleural effusion [Unknown]
  - Decreased appetite [Unknown]
  - Gastrointestinal haemorrhage [Recovered/Resolved]
  - Chills [Unknown]
  - Dizziness [Unknown]
  - Dehydration [Unknown]
  - Haemoglobin decreased [Unknown]
  - Shock haemorrhagic [Recovered/Resolved]
  - Melaena [Unknown]
  - Pancytopenia [Unknown]
  - Somnolence [Unknown]
  - Fatigue [Unknown]

NARRATIVE: CASE EVENT DATE: 20190410
